FAERS Safety Report 7292426-6 (Version None)
Quarter: 2011Q1

REPORT INFORMATION
  Report Type: 
  Country: None (occurrence: None)
  Receive Date: 20110215
  Receipt Date: 20110209
  Transmission Date: 20110831
  Serious: No
  Sender: FDA-Public Use
  Company Number: US-PFIZER INC-2011029212

PATIENT
  Sex: Female
  Weight: 63.492 kg

DRUGS (2)
  1. NEURONTIN [Suspect]
     Indication: POST-TRAUMATIC STRESS DISORDER
     Dosage: 400 MG, 1X/DAY
     Route: 048
     Dates: start: 20000101
  2. DOXYCYCLINE HYCLATE [Suspect]
     Indication: PROPHYLAXIS
     Dosage: 50 MG, 2X/DAY
     Route: 048
     Dates: start: 20110204

REACTIONS (3)
  - FATIGUE [None]
  - VOMITING [None]
  - SOMNOLENCE [None]
